FAERS Safety Report 9316784 (Version 1)
Quarter: 2013Q2

REPORT INFORMATION
  Report Type: Spontaneous
  Country: US (occurrence: None)
  Receive Date: 20130528
  Receipt Date: 20130528
  Transmission Date: 20140414
  Serious: Yes (Other)
  Sender: FDA-Public Use
  Company Number: None

PATIENT
  Age: 72 Year
  Sex: Female
  Weight: 70 kg

DRUGS (1)
  1. OCTAGAM [Suspect]
     Indication: NEUROPATHY PERIPHERAL
     Dosage: 42ML/H, 252ML/H MAX IV DRIP
     Dates: start: 20130506, end: 20130506

REACTIONS (1)
  - Muscle spasms [None]
